FAERS Safety Report 17124258 (Version 41)
Quarter: 2020Q4

REPORT INFORMATION
  Report Type: Report from Study
  Country: JP (occurrence: JP)
  Receive Date: 20191206
  Receipt Date: 20201229
  Transmission Date: 20210113
  Serious: Yes (Hospitalization)
  Sender: FDA-Public Use
  Company Number: JP-EISAI MEDICAL RESEARCH-EC-2019-066625

PATIENT
  Age: 63 Year
  Sex: Female
  Weight: 56.6 kg

DRUGS (19)
  1. LENVATINIB [Suspect]
     Active Substance: LENVATINIB
     Dosage: STARTING DOSE AT 10 MG, FLUCTUATED DOSE
     Route: 048
     Dates: start: 20191225, end: 20200610
  2. LENVATINIB [Suspect]
     Active Substance: LENVATINIB
     Route: 048
     Dates: start: 20200804, end: 20201101
  3. PEMBROLIZUMAB. [Suspect]
     Active Substance: PEMBROLIZUMAB
     Route: 041
     Dates: start: 20201028, end: 20201028
  4. PEMBROLIZUMAB. [Suspect]
     Active Substance: PEMBROLIZUMAB
     Indication: ENDOMETRIAL CANCER
     Route: 041
     Dates: start: 20191119, end: 20191119
  5. PEMBROLIZUMAB. [Suspect]
     Active Substance: PEMBROLIZUMAB
     Route: 041
     Dates: start: 20200610, end: 20200610
  6. ATORVASTATIN [Concomitant]
     Active Substance: ATORVASTATIN
     Dates: start: 201101
  7. PETROLATUM WHITE [Concomitant]
     Dates: start: 20191118
  8. ACETYLOL OINTMENT [Concomitant]
     Dates: start: 20191120
  9. HACHIAZULE [Concomitant]
     Dates: start: 20191129
  10. LENVATINIB [Suspect]
     Active Substance: LENVATINIB
     Route: 048
     Dates: start: 20200611, end: 20200622
  11. PEMBROLIZUMAB. [Suspect]
     Active Substance: PEMBROLIZUMAB
     Route: 041
     Dates: start: 20191213, end: 20191213
  12. NIFEDIPINE. [Concomitant]
     Active Substance: NIFEDIPINE
     Dates: start: 20191121, end: 20191202
  13. DICLOFENAC [Concomitant]
     Active Substance: DICLOFENAC
     Dates: start: 20191129, end: 20191130
  14. LENVATINIB [Suspect]
     Active Substance: LENVATINIB
     Route: 048
     Dates: start: 20201125
  15. LENVATINIB [Suspect]
     Active Substance: LENVATINIB
     Indication: ENDOMETRIAL CANCER
     Route: 048
     Dates: start: 20191119, end: 20191202
  16. PEMBROLIZUMAB. [Suspect]
     Active Substance: PEMBROLIZUMAB
     Route: 041
     Dates: start: 20200109, end: 20200520
  17. PEMBROLIZUMAB. [Suspect]
     Active Substance: PEMBROLIZUMAB
     Route: 041
     Dates: start: 20200804, end: 20201007
  18. LENVATINIB [Suspect]
     Active Substance: LENVATINIB
     Dosage: DECREASED DOSE
     Route: 048
     Dates: start: 20191213, end: 20191213
  19. CELECOXIB. [Suspect]
     Active Substance: CELECOXIB
     Indication: OSTEOARTHRITIS
     Route: 048
     Dates: start: 20200610, end: 20200623

REACTIONS (2)
  - Drug eruption [Recovered/Resolved]
  - Myalgia [Recovered/Resolved]

NARRATIVE: CASE EVENT DATE: 20191203
